FAERS Safety Report 5008206-8 (Version None)
Quarter: 2006Q2

REPORT INFORMATION
  Report Type: 
  Country: None (occurrence: None)
  Receive Date: 20060404
  Receipt Date: 20060126
  Transmission Date: 20061013
  Serious: No
  Sender: FDA-Public Use
  Company Number: US200601004721

PATIENT
  Sex: Female

DRUGS (3)
  1. CYMBALTA [Suspect]
     Dosage: 60 MG, DAILY (1/D), ORAL
     Route: 048
     Dates: start: 20050101
  2. NEURONTIN [Concomitant]
  3. AMITRIPTYLINE HCL [Concomitant]

REACTIONS (5)
  - DRUG INEFFECTIVE [None]
  - GASTROINTESTINAL DISORDER [None]
  - INFECTION [None]
  - MUSCLE TWITCHING [None]
  - NASOPHARYNGITIS [None]
